FAERS Safety Report 25928144 (Version 1)
Quarter: 2025Q4

REPORT INFORMATION
  Report Type: Report from Study
  Country: JP (occurrence: JP)
  Receive Date: 20251016
  Receipt Date: 20251016
  Transmission Date: 20260117
  Serious: Yes (Other)
  Sender: CSL BEHRING
  Company Number: JP-BEH-2025221526

PATIENT

DRUGS (2)
  1. GARADACIMAB [Suspect]
     Active Substance: GARADACIMAB
     Indication: Hereditary angioedema
     Dosage: UNK
     Route: 065
  2. GARADACIMAB [Suspect]
     Active Substance: GARADACIMAB
     Indication: Prophylaxis

REACTIONS (1)
  - Hereditary angioedema [Unknown]
